FAERS Safety Report 6639235-6 (Version None)
Quarter: 2010Q1

REPORT INFORMATION
  Report Type: 
  Country: None (occurrence: None)
  Receive Date: 20100315
  Receipt Date: 20100225
  Transmission Date: 20100710
  Serious: Yes (Death)
  Sender: FDA-Public Use
  Company Number: 2010VX000122

PATIENT
  Age: 73 Year
  Sex: Female

DRUGS (14)
  1. BUTALBITAL ACETAMINOPHEN AND CAFFEINE [Suspect]
     Indication: DRUG USE FOR UNKNOWN INDICATION
  2. DOXEPIN HCL [Suspect]
     Indication: DRUG USE FOR UNKNOWN INDICATION
  3. ALPRAZOLAM [Suspect]
     Indication: DRUG USE FOR UNKNOWN INDICATION
  4. IRBESARTAN [Suspect]
     Indication: DRUG USE FOR UNKNOWN INDICATION
  5. EZETIMIBE [Suspect]
     Indication: DRUG USE FOR UNKNOWN INDICATION
  6. SALICYLATE [Suspect]
     Indication: DRUG USE FOR UNKNOWN INDICATION
  7. CLOPIDOGREL [Suspect]
     Indication: DRUG USE FOR UNKNOWN INDICATION
  8. AMLODIPINE [Concomitant]
  9. DOXEPIN HCL [Concomitant]
  10. IRBESARTAN [Concomitant]
  11. EZETIMIBE [Concomitant]
  12. ALPRAZOLAM [Concomitant]
  13. ASPIRIN [Concomitant]
  14. ATORVASTATIN CALCIUM [Concomitant]

REACTIONS (3)
  - COMPLETED SUICIDE [None]
  - POISONING [None]
  - SUBSTANCE ABUSE [None]
